FAERS Safety Report 8099309-2 (Version None)
Quarter: 2012Q1

REPORT INFORMATION
  Report Type: 
  Country: None (occurrence: None)
  Receive Date: 20120131
  Receipt Date: 20120123
  Transmission Date: 20120608
  Serious: Yes (Hospitalization)
  Sender: FDA-Public Use
  Company Number: US-PFIZER INC-2010106088

PATIENT
  Sex: Male

DRUGS (9)
  1. FERROUS SULFATE [Concomitant]
     Indication: ANAEMIA
     Dosage: UNK
  2. VITAMIN D [Concomitant]
     Indication: SUPPLEMENTATION THERAPY
     Dosage: UNK
  3. LISINOPRIL [Concomitant]
     Indication: HYPERTENSION
     Dosage: UNK
  4. PREDNISONE TAB [Suspect]
     Indication: PROSTATE CANCER
     Dosage: 5 MG, 2X/DAY
     Route: 048
     Dates: start: 20091104
  5. CALCIUM [Concomitant]
     Indication: PROPHYLAXIS
     Dosage: UNK
  6. PERCOCET [Concomitant]
     Indication: SCROTAL PAIN
     Dosage: UNK
  7. MS CONTIN [Concomitant]
     Indication: SCROTAL PAIN
     Dosage: UNK
  8. PLACEBO [Suspect]
     Indication: PROSTATE CANCER
     Dosage: 1X/DAY
     Route: 048
     Dates: start: 20091104
  9. OXYCODONE [Concomitant]
     Indication: SCROTAL PAIN
     Dosage: UNK

REACTIONS (1)
  - PNEUMONIA [None]
